FAERS Safety Report 9447021 (Version 3)
Quarter: 2013Q4

REPORT INFORMATION
  Report Type: Spontaneous
  Country: US (occurrence: US)
  Receive Date: 20130807
  Receipt Date: 20131202
  Transmission Date: 20140711
  Serious: No
  Sender: FDA-Public Use
  Company Number: US-AMGEN-USASP2013049047

PATIENT
  Age: 40 Year
  Sex: Female
  Weight: 157.82 kg

DRUGS (2)
  1. ENBREL [Suspect]
     Indication: RHEUMATOID ARTHRITIS
     Dosage: 50 MG, QWK
     Route: 065
     Dates: start: 20130701, end: 20130921
  2. METHOTREXATE [Concomitant]
     Dosage: 20 MG, QWK
     Route: 048
     Dates: start: 201210

REACTIONS (17)
  - Rheumatoid factor increased [Unknown]
  - Oropharyngeal pain [Not Recovered/Not Resolved]
  - Pyrexia [Not Recovered/Not Resolved]
  - Pain in extremity [Not Recovered/Not Resolved]
  - Arthralgia [Not Recovered/Not Resolved]
  - Local swelling [Not Recovered/Not Resolved]
  - Joint swelling [Not Recovered/Not Resolved]
  - Inflammation [Unknown]
  - Injection site bruising [Not Recovered/Not Resolved]
  - Injection site swelling [Recovered/Resolved]
  - Injection site pruritus [Not Recovered/Not Resolved]
  - Injection site erythema [Recovered/Resolved]
  - Injection site pain [Not Recovered/Not Resolved]
  - Injection site reaction [Unknown]
  - Ear infection [Not Recovered/Not Resolved]
  - Injection site hypersensitivity [Recovered/Resolved]
  - Injection site urticaria [Recovered/Resolved]
